FAERS Safety Report 4619538-7 (Version None)
Quarter: 2005Q1

REPORT INFORMATION
  Report Type: 
  Country: None (occurrence: None)
  Receive Date: 20050324
  Receipt Date: 20050310
  Transmission Date: 20050727
  Serious: Yes (Hospitalization)
  Sender: FDA-Public Use
  Company Number: 2004IM000170

PATIENT
  Age: 60 Year
  Sex: Female
  Weight: 82.1 kg

DRUGS (9)
  1. INTERFERON GAMMA-1B [Suspect]
     Indication: OVARIAN CANCER
     Dosage: 100 UG, TIW, SUBCUTANEOUS
     Route: 058
     Dates: start: 20030826, end: 20040128
  2. CARBOPLATIN [Suspect]
     Indication: OVARIAN CANCER
     Dosage: 630 MG, Q3W, INTRAVENOUS
     Route: 042
     Dates: start: 20030826, end: 20040120
  3. PACLITAXEL [Suspect]
     Indication: OVARIAN CANCER
     Dosage: 320 MG, Q3W, INTRAVENOUS
     Route: 042
     Dates: start: 20030826, end: 20040120
  4. LOTREL [Concomitant]
  5. NEXIUM [Concomitant]
  6. MAXZIDE [Concomitant]
  7. PROZAC [Concomitant]
  8. COUMADIN [Concomitant]
  9. AMBIEN [Concomitant]

REACTIONS (5)
  - ATELECTASIS [None]
  - CATHETER SITE ERYTHEMA [None]
  - ERYTHEMA [None]
  - FEBRILE NEUTROPENIA [None]
  - OCULAR HYPERAEMIA [None]
